FAERS Safety Report 22007335 (Version 4)
Quarter: 2023Q2

REPORT INFORMATION
  Report Type: Report from Study
  Country: US (occurrence: US)
  Receive Date: 20230218
  Receipt Date: 20230601
  Transmission Date: 20230721
  Serious: No
  Sender: FDA-Public Use
  Company Number: US-002147023-NVSC2023US036860

PATIENT
  Sex: Female

DRUGS (1)
  1. COSENTYX [Suspect]
     Active Substance: SECUKINUMAB
     Indication: Psoriasis
     Route: 058

REACTIONS (6)
  - COVID-19 [Unknown]
  - Conjunctivitis viral [Unknown]
  - Herpes zoster [Unknown]
  - Psoriasis [Unknown]
  - Diarrhoea [Unknown]
  - Drug ineffective [Unknown]
